FAERS Safety Report 6829854-6 (Version None)
Quarter: 2010Q3

REPORT INFORMATION
  Report Type: 
  Country: None (occurrence: None)
  Receive Date: 20100710
  Receipt Date: 20070906
  Transmission Date: 20110219
  Serious: Yes (Hospitalization, Disabling)
  Sender: FDA-Public Use
  Company Number: GB-JNJFOC-20100701117

PATIENT
  Age: 16 Year
  Sex: Female

DRUGS (1)
  1. ACETAMINOPHEN AND CODEINE PHOSPHATE [Suspect]
     Indication: DYSMENORRHOEA
     Route: 048

REACTIONS (3)
  - INTENTIONAL OVERDOSE [None]
  - PRURITUS GENERALISED [None]
  - URTICARIA [None]
